FAERS Safety Report 17718053 (Version 3)
Quarter: 2021Q1

REPORT INFORMATION
  Report Type: Spontaneous
  Country: JP (occurrence: JP)
  Receive Date: 20200428
  Receipt Date: 20210218
  Transmission Date: 20210419
  Serious: Yes (Other)
  Sender: FDA-Public Use
  Company Number: NVSC2020JP108732

PATIENT
  Age: 67 Year
  Sex: Female

DRUGS (6)
  1. HEPARIN [Suspect]
     Active Substance: HEPARIN SODIUM
     Indication: ANTICOAGULANT THERAPY
     Dosage: 10000 IU, QD, ON DAY 20
     Route: 041
     Dates: start: 2017, end: 2017
  2. FLUOROURACIL. [Concomitant]
     Active Substance: FLUOROURACIL
     Indication: CHEMOTHERAPY
     Dosage: UNK, 3 CYCLES
     Route: 065
  3. NOVASTAN [Suspect]
     Active Substance: ARGATROBAN
     Dosage: 50 MG, QD, ON DAY 28
     Route: 041
  4. METHOTREXATE. [Concomitant]
     Active Substance: METHOTREXATE
     Indication: CHEMOTHERAPY
     Dosage: UNK, 3 CYCLES
     Route: 065
  5. NOVASTAN [Suspect]
     Active Substance: ARGATROBAN
     Indication: ANTICOAGULANT THERAPY
     Dosage: 60 MG, QD
     Route: 041
     Dates: start: 2017
  6. NOVASTAN [Suspect]
     Active Substance: ARGATROBAN
     Dosage: 25 MG, QD
     Route: 041

REACTIONS (3)
  - Acute myocardial infarction [Unknown]
  - Cerebral infarction [Recovered/Resolved]
  - Bleeding time prolonged [Unknown]

NARRATIVE: CASE EVENT DATE: 2017
